FAERS Safety Report 9955737 (Version 4)
Quarter: 2014Q2

REPORT INFORMATION
  Report Type: Spontaneous
  Country: IT (occurrence: IT)
  Receive Date: 20140304
  Receipt Date: 20140429
  Transmission Date: 20141212
  Serious: Yes (Hospitalization)
  Sender: FDA-Public Use
  Company Number: IT-ABBVIE-14P-083-1208643-00

PATIENT
  Age: 38 Year
  Sex: Female

DRUGS (13)
  1. DEPAKINE CHRONO [Suspect]
     Indication: SUICIDE ATTEMPT
     Dosage: TABLET EXTENDED RELEASE
     Route: 048
     Dates: start: 20140214, end: 20140214
  2. DEPAKINE CHRONO [Suspect]
     Indication: DRUG ABUSE
     Dosage: TABLET EXTENDED RELEASE
     Route: 048
     Dates: end: 201111
  3. DEPAKINE CHRONO [Suspect]
     Indication: AFFECTIVE DISORDER
  4. SEROQUEL [Suspect]
     Indication: SUICIDE ATTEMPT
     Dosage: EXTENDED RELEASE
     Route: 048
     Dates: start: 20140214, end: 20140214
  5. SEROQUEL [Suspect]
     Indication: DRUG ABUSE
     Dosage: EXTENDED RELEASE
     Route: 048
     Dates: start: 20130705, end: 201401
  6. SEROQUEL [Suspect]
     Indication: AFFECTIVE DISORDER
  7. QUETIAPINE [Suspect]
     Indication: SUICIDE ATTEMPT
     Route: 048
     Dates: start: 20140214, end: 20140214
  8. QUETIAPINE [Suspect]
     Indication: DRUG ABUSE
     Route: 048
     Dates: start: 201401
  9. QUETIAPINE [Suspect]
     Indication: AFFECTIVE DISORDER
     Route: 048
     Dates: start: 20131029
  10. EN [Suspect]
     Indication: SUICIDE ATTEMPT
     Route: 048
     Dates: start: 20140214, end: 20140214
  11. EN [Suspect]
     Indication: AFFECTIVE DISORDER
     Route: 048
  12. ETHANOL [Suspect]
     Indication: PRODUCT USED FOR UNKNOWN INDICATION
     Route: 065
     Dates: start: 20140214, end: 20140214
  13. PAROXETINE [Concomitant]
     Indication: AFFECTIVE DISORDER
     Route: 048
     Dates: start: 20140101, end: 20140219

REACTIONS (5)
  - Schizoaffective disorder [Unknown]
  - Sopor [Recovered/Resolved]
  - Suicide attempt [Unknown]
  - Drug abuse [Recovered/Resolved]
  - Intentional product misuse [Recovered/Resolved]
